FAERS Safety Report 7904933-0 (Version None)
Quarter: 2011Q4

REPORT INFORMATION
  Report Type: 
  Country: None (occurrence: None)
  Receive Date: 20111109
  Receipt Date: 20111102
  Transmission Date: 20120403
  Serious: Yes (Other)
  Sender: FDA-Public Use
  Company Number: PHHY2011VE098041

PATIENT
  Sex: Female

DRUGS (5)
  1. ASCORBIC ACID [Concomitant]
     Dosage: 500 MG, UNK
  2. CALCIUM [Concomitant]
  3. ZOLEDRONOC ACID [Suspect]
     Indication: BONE DISORDER
     Dosage: 5 MG, UNK
     Route: 042
     Dates: start: 20100701
  4. VITAMIN E [Concomitant]
     Dosage: 500 MG, UNK
  5. ANASTRAZOLE [Concomitant]
     Indication: NEOPLASM MALIGNANT
     Dosage: 1 MG, UNK

REACTIONS (3)
  - NEPHROLITHIASIS [None]
  - HEADACHE [None]
  - BLOOD CALCIUM INCREASED [None]
